FAERS Safety Report 23727565 (Version 7)
Quarter: 2024Q4

REPORT INFORMATION
  Report Type: Report from Study
  Country: ES (occurrence: ES)
  Receive Date: 20240410
  Receipt Date: 20241114
  Transmission Date: 20250114
  Serious: Yes (Hospitalization, Disabling, Other)
  Sender: BOEHRINGER INGELHEIM
  Company Number: ES-BoehringerIngelheim-2022-BI-175417

PATIENT
  Age: 73 Year
  Sex: Female
  Weight: 56.5 kg

DRUGS (1)
  1. OFEV [Suspect]
     Active Substance: NINTEDANIB
     Indication: Idiopathic pulmonary fibrosis
     Route: 048
     Dates: start: 20170615

REACTIONS (34)
  - Intervertebral disc protrusion [Not Recovered/Not Resolved]
  - Hypertensive crisis [Recovered/Resolved]
  - Idiopathic pulmonary fibrosis [Not Recovered/Not Resolved]
  - Haematochezia [Recovered/Resolved]
  - Cataract [Recovered/Resolved]
  - Excessive cerumen production [Recovered/Resolved]
  - Hypertension [Not Recovered/Not Resolved]
  - Cataract [Recovered/Resolved]
  - Nasopharyngitis [Recovered/Resolved]
  - Ligament sprain [Recovered/Resolved]
  - Nasopharyngitis [Recovered/Resolved]
  - COVID-19 [Recovered/Resolved]
  - Dizziness [Recovered/Resolved]
  - Decreased appetite [Recovered/Resolved]
  - Intraocular pressure test abnormal [Recovered/Resolved]
  - Mass [Recovered/Resolved]
  - Haemorrhoids [Not Recovered/Not Resolved]
  - Nasopharyngitis [Recovered/Resolved]
  - Intraocular pressure increased [Recovered/Resolved]
  - Rash [Recovered/Resolved]
  - Nasopharyngitis [Recovered/Resolved]
  - Chest pain [Recovered/Resolved]
  - Nasopharyngitis [Recovered/Resolved]
  - Arthropod bite [Recovered/Resolved]
  - Peripheral swelling [Recovered/Resolved]
  - Red blood cell sedimentation rate increased [Not Recovered/Not Resolved]
  - Peripheral swelling [Not Recovered/Not Resolved]
  - Pain in extremity [Not Recovered/Not Resolved]
  - Respiratory tract infection [Recovered/Resolved]
  - Asthenia [Recovered/Resolved]
  - Nasopharyngitis [Recovered/Resolved]
  - Heat stroke [Recovered/Resolved]
  - Nasopharyngitis [Recovered/Resolved]
  - Headache [Recovered/Resolved]

NARRATIVE: CASE EVENT DATE: 20220101
